FAERS Safety Report 12317709 (Version 1)
Quarter: 2016Q2

REPORT INFORMATION
  Report Type: Spontaneous
  Country: US (occurrence: None)
  Receive Date: 20160428
  Receipt Date: 20160428
  Transmission Date: 20160815
  Serious: No
  Sender: FDA-Public Use
  Company Number: None

PATIENT
  Age: 46 Year
  Sex: Female

DRUGS (4)
  1. GABAPENTIN. [Concomitant]
     Active Substance: GABAPENTIN
  2. MELOXICAM. [Concomitant]
     Active Substance: MELOXICAM
  3. AZATHIOPRINE 50MG [Suspect]
     Active Substance: AZATHIOPRINE
     Route: 048
     Dates: start: 20160326
  4. HYDROCO/APAP [Concomitant]
     Active Substance: ACETAMINOPHEN\HYDROCODONE

REACTIONS (2)
  - Feeling abnormal [None]
  - Immune system disorder [None]

NARRATIVE: CASE EVENT DATE: 2016
